FAERS Safety Report 4537610-7 (Version None)
Quarter: 2004Q4

REPORT INFORMATION
  Report Type: 
  Country: None (occurrence: None)
  Receive Date: 20041221
  Receipt Date: 20040920
  Transmission Date: 20050328
  Serious: Yes (Hospitalization)
  Sender: FDA-Public Use
  Company Number: A-US2004-07456

PATIENT
  Age: 40 Year
  Sex: Female

DRUGS (2)
  1. TRACLEER [Suspect]
     Indication: PULMONARY HYPERTENSION
     Dosage: 62.5 MG BID ORAL
     Route: 048
     Dates: start: 20040908
  2. LORTAB [Concomitant]

REACTIONS (1)
  - SWELLING [None]
